FAERS Safety Report 5098008-9 (Version None)
Quarter: 2006Q3

REPORT INFORMATION
  Report Type: 
  Country: None (occurrence: None)
  Receive Date: 20060905
  Receipt Date: 20060822
  Transmission Date: 20061208
  Serious: Yes (Death)
  Sender: FDA-Public Use
  Company Number: CLOF-10298

PATIENT
  Age: 72 Year
  Sex: Male
  Weight: 83.9 kg

DRUGS (9)
  1. CLOFARABINE [Suspect]
     Indication: CHRONIC MYELOMONOCYTIC LEUKAEMIA
     Dosage: 30 MG DAILY IV
     Route: 042
     Dates: start: 20060721, end: 20060721
  2. CLOFARABINE [Suspect]
     Indication: MYELODYSPLASTIC SYNDROME
     Dosage: 30 MG DAILY IV
     Route: 042
     Dates: start: 20060721, end: 20060721
  3. HYDROXYUREA [Concomitant]
  4. VANTIN [Concomitant]
  5. ALLOPURINOL [Concomitant]
  6. NEXIUM [Concomitant]
  7. K-DUR 10 [Concomitant]
  8. LASIX [Concomitant]
  9. XOPENEX [Concomitant]

REACTIONS (6)
  - ACIDOSIS [None]
  - BLOOD PHOSPHORUS INCREASED [None]
  - BLOOD POTASSIUM INCREASED [None]
  - DYSPNOEA [None]
  - HYPOTENSION [None]
  - RENAL IMPAIRMENT [None]
